FAERS Safety Report 4368258-5 (Version None)
Quarter: 2004Q2

REPORT INFORMATION
  Report Type: 
  Country: None (occurrence: None)
  Receive Date: 20040527
  Receipt Date: 20040512
  Transmission Date: 20050107
  Serious: Yes (Death, Hospitalization)
  Sender: FDA-Public Use
  Company Number: F01200301453

PATIENT
  Age: 76 Year
  Sex: Male

DRUGS (2)
  1. OXALIPLATIN [Suspect]
     Indication: COLORECTAL CANCER METASTATIC
     Dosage: 239 MG Q3W
     Route: 042
     Dates: start: 20031120, end: 20031120
  2. CAPECITABINE [Suspect]
     Dosage: 1000 MG/M2 TWICE DAILY FROM DAY 1 TO DAY 15, Q3W
     Route: 048
     Dates: start: 20031120

REACTIONS (8)
  - ANAEMIA [None]
  - DEHYDRATION [None]
  - DERMATITIS [None]
  - FEBRILE NEUTROPENIA [None]
  - HYPOPROTEINAEMIA [None]
  - STOMATITIS HAEMORRHAGIC [None]
  - THROMBOCYTOPENIA [None]
  - WHITE BLOOD CELL COUNT DECREASED [None]
